FAERS Safety Report 18668696 (Version 1)
Quarter: 2020Q4

REPORT INFORMATION
  Report Type: Spontaneous
  Country: US (occurrence: US)
  Receive Date: 20201226
  Receipt Date: 20201226
  Transmission Date: 20210114
  Serious: Yes (Hospitalization)
  Sender: FDA-Public Use
  Company Number: None

PATIENT
  Age: 88 Year
  Sex: Female
  Weight: 54.4 kg

DRUGS (1)
  1. AMIODARONE [Suspect]
     Active Substance: AMIODARONE
     Indication: ATRIAL FIBRILLATION
     Dosage: ?          OTHER FREQUENCY:MWF;?
     Route: 048
     Dates: start: 20190401, end: 20200721

REACTIONS (6)
  - Pulmonary mass [None]
  - Rales [None]
  - Pleural fibrosis [None]
  - Pneumonia [None]
  - Pulmonary toxicity [None]
  - Drug hypersensitivity [None]

NARRATIVE: CASE EVENT DATE: 20200720
